FAERS Safety Report 11328472 (Version 4)
Quarter: 2015Q4

REPORT INFORMATION
  Report Type: Spontaneous
  Country: JP (occurrence: JP)
  Receive Date: 20150731
  Receipt Date: 20151020
  Transmission Date: 20160304
  Serious: Yes (Other)
  Sender: FDA-Public Use
  Company Number: JP-JNJFOC-20150722331

PATIENT
  Sex: Male

DRUGS (2)
  1. BEPRIDIL [Suspect]
     Active Substance: BEPRIDIL
     Indication: PRODUCT USED FOR UNKNOWN INDICATION
     Route: 048
  2. XARELTO [Suspect]
     Active Substance: RIVAROXABAN
     Indication: CEREBROVASCULAR ACCIDENT PROPHYLAXIS
     Route: 048
     Dates: start: 20150115, end: 20150514

REACTIONS (1)
  - Interstitial lung disease [Not Recovered/Not Resolved]
